FAERS Safety Report 9809703 (Version 1)
Quarter: 2014Q1

REPORT INFORMATION
  Report Type: Spontaneous
  Country: US (occurrence: US)
  Receive Date: 20140110
  Receipt Date: 20140110
  Transmission Date: 20141002
  Serious: Yes (Hospitalization)
  Sender: FDA-Public Use
  Company Number: US-B.I. PHARMACEUTICALS,INC./RIDGEFIELD-2014-BI-00914BP

PATIENT
  Sex: Female
  Weight: 127.01 kg

DRUGS (2)
  1. MOBIC [Suspect]
     Indication: ARTHRITIS
  2. CELEBREX [Suspect]
     Indication: ARTHRITIS
     Dosage: 200 MG

REACTIONS (2)
  - Fungal infection [Recovered/Resolved]
  - Abdominal discomfort [Unknown]
